FAERS Safety Report 25489690 (Version 2)
Quarter: 2025Q4

REPORT INFORMATION
  Report Type: Report from Study
  Country: EU (occurrence: EU)
  Receive Date: 20250627
  Receipt Date: 20251021
  Transmission Date: 20260118
  Serious: Yes (Death, Hospitalization, Other)
  Sender: PFIZER
  Company Number: EU-SANDOZ-SDZ2025DE042592

PATIENT
  Sex: Female

DRUGS (3)
  1. METHOTREXATE SODIUM [Suspect]
     Active Substance: METHOTREXATE SODIUM
     Dosage: 20 MG, QW
     Route: 065
     Dates: start: 20170815, end: 202501
  2. HYRIMOZ [Suspect]
     Active Substance: ADALIMUMAB-ADAZ
     Dosage: 40 MG, Q2W
     Route: 065
     Dates: start: 20190219, end: 20250106
  3. LEFLUNOMIDE [Suspect]
     Active Substance: LEFLUNOMIDE
     Dosage: UNK, 20
     Route: 065
     Dates: start: 20170815, end: 20190219

REACTIONS (9)
  - Septic shock [Fatal]
  - Urinary tract infection enterococcal [Fatal]
  - Cardiac failure [Fatal]
  - Ovarian mass [Unknown]
  - Cardiac failure [Unknown]
  - Back pain [Unknown]
  - Sciatica [Unknown]
  - Necrotising ulcerative gingivostomatitis [Unknown]
  - Pancytopenia [Unknown]

NARRATIVE: CASE EVENT DATE: 20241201
